FAERS Safety Report 7071418-6 (Version None)
Quarter: 2010Q4

REPORT INFORMATION
  Report Type: 
  Country: None (occurrence: None)
  Receive Date: 20101029
  Receipt Date: 20091027
  Transmission Date: 20110411
  Serious: Yes (Other)
  Sender: FDA-Public Use
  Company Number: A0796876A

PATIENT
  Age: 62 Year
  Sex: Female

DRUGS (4)
  1. ADVAIR DISKUS 100/50 [Suspect]
     Indication: BRONCHITIS
     Route: 055
     Dates: start: 20040506, end: 20040601
  2. FLONASE [Concomitant]
  3. LOTREL [Concomitant]
  4. UNITHROID [Concomitant]

REACTIONS (1)
  - GLAUCOMA [None]
